FAERS Safety Report 21450766 (Version 1)
Quarter: 2022Q4

REPORT INFORMATION
  Report Type: Spontaneous
  Country: JP (occurrence: JP)
  Receive Date: 20221013
  Receipt Date: 20221013
  Transmission Date: 20230113
  Serious: Yes (Other)
  Sender: FDA-Public Use
  Company Number: JP-MYOVANT SCIENCES GMBH-2022MYSCI0900306

PATIENT
  Age: 53 Year
  Sex: Female

DRUGS (2)
  1. RELUGOLIX [Suspect]
     Active Substance: RELUGOLIX
     Indication: Uterine leiomyoma
     Dosage: 40 MILLIGRAM, QD
     Route: 048
     Dates: start: 20201003, end: 20210315
  2. RELUGOLIX [Suspect]
     Active Substance: RELUGOLIX
     Dosage: 40 MILLIGRAM, QD
     Route: 048
     Dates: start: 20220625

REACTIONS (3)
  - Urinary retention [Unknown]
  - Arthralgia [Recovered/Resolved]
  - Intermenstrual bleeding [Recovered/Resolved]

NARRATIVE: CASE EVENT DATE: 20210301
